FAERS Safety Report 6804092-1 (Version None)
Quarter: 2010Q2

REPORT INFORMATION
  Report Type: 
  Country: None (occurrence: None)
  Receive Date: 20100628
  Receipt Date: 20070202
  Transmission Date: 20101027
  Serious: No
  Sender: FDA-Public Use
  Company Number: US-PFIZER INC-2006153815

PATIENT
  Age: 72 Year
  Sex: Female
  Weight: 54.43 kg

DRUGS (2)
  1. XALATAN [Suspect]
     Indication: GLAUCOMA
  2. FOSAMAX [Concomitant]

REACTIONS (1)
  - OCULAR HYPERAEMIA [None]
